FAERS Safety Report 11289250 (Version 1)
Quarter: 2015Q3

REPORT INFORMATION
  Report Type: Spontaneous
  Country: US (occurrence: US)
  Receive Date: 20150721
  Receipt Date: 20150721
  Transmission Date: 20151125
  Serious: No
  Sender: FDA-Public Use
  Company Number: US-ENDO PHARMACEUTICALS INC.-CLOZ20140035

PATIENT
  Sex: Male

DRUGS (1)
  1. CLONAZEPAM 1MG [Suspect]
     Active Substance: CLONAZEPAM
     Indication: PRODUCT USED FOR UNKNOWN INDICATION
     Route: 065

REACTIONS (5)
  - Hiatus hernia [Unknown]
  - Abdominal distension [Unknown]
  - Nausea [Unknown]
  - Decreased appetite [Unknown]
  - Condition aggravated [Unknown]
